FAERS Safety Report 25777295 (Version 1)
Quarter: 2025Q3

REPORT INFORMATION
  Report Type: Spontaneous
  Country: EU (occurrence: EU)
  Receive Date: 20250909
  Receipt Date: 20250909
  Transmission Date: 20251020
  Serious: Yes (Death, Disabling)
  Sender: ACCORD
  Company Number: None

PATIENT
  Age: 36 Year
  Sex: Male
  Weight: 67 kg

DRUGS (1)
  1. SERTRALINE [Suspect]
     Active Substance: SERTRALINE HYDROCHLORIDE
     Indication: Migraine
     Dates: start: 20230621, end: 20250601

REACTIONS (10)
  - Withdrawal syndrome [Fatal]
  - Drug hypersensitivity [Fatal]
  - Food allergy [Fatal]
  - Myalgia [Fatal]
  - Completed suicide [Fatal]
  - Migraine [Fatal]
  - Arthralgia [Fatal]
  - Central pain syndrome [Fatal]
  - Petechiae [Fatal]
  - Oral mucosal exfoliation [Fatal]

NARRATIVE: CASE EVENT DATE: 20230621
